FAERS Safety Report 23031537 (Version 1)
Quarter: 2023Q4

REPORT INFORMATION
  Report Type: Spontaneous
  Country: CA (occurrence: CA)
  Receive Date: 20231005
  Receipt Date: 20231005
  Transmission Date: 20240110
  Serious: Yes (Other)
  Sender: FDA-Public Use
  Company Number: CA-AUROBINDO-AUR-APL-2023-061812

PATIENT
  Age: 70 Year
  Sex: Female
  Weight: 49.887 kg

DRUGS (1)
  1. LIDOCAINE [Suspect]
     Active Substance: LIDOCAINE
     Indication: Lymphatic mapping
     Dosage: UNK, ONCE A DAY
     Route: 023

REACTIONS (1)
  - Erythema [Recovered/Resolved]
